FAERS Safety Report 6981017-X (Version None)
Quarter: 2010Q3

REPORT INFORMATION
  Report Type: 
  Country: None (occurrence: None)
  Receive Date: 20100914
  Receipt Date: 20100902
  Transmission Date: 20110219
  Serious: Yes (Hospitalization, Other)
  Sender: FDA-Public Use
  Company Number: JP-PFIZER INC-2008152389

PATIENT
  Age: 52 Year
  Sex: Male

DRUGS (19)
  1. LIPITOR [Suspect]
     Indication: HYPERLIPIDAEMIA
     Dosage: 10 MG, 1X/DAY
     Route: 048
     Dates: start: 20081009, end: 20081128
  2. LIPITOR [Suspect]
     Indication: LIPIDS INCREASED
  3. GASTER OD [Suspect]
     Indication: GASTRITIS
     Dosage: 40 MG, 1X/DAY
     Route: 048
     Dates: start: 20081009, end: 20081128
  4. MICARDIS [Suspect]
     Indication: HYPERTENSION
     Dosage: 40 MG, 1X/DAY
     Route: 048
     Dates: start: 20081009, end: 20081128
  5. ASPIRIN [Suspect]
     Indication: ANTIPLATELET THERAPY
     Dosage: 100 MG, 1X/DAY
     Route: 048
     Dates: start: 20081009, end: 20081128
  6. ASPIRIN [Suspect]
     Dosage: 100 MG/DAY
     Route: 048
     Dates: start: 20081218
  7. LASIX [Suspect]
     Indication: CARDIOVASCULAR EVENT PROPHYLAXIS
     Dosage: 20 MG, 1X/DAY
     Route: 048
     Dates: start: 20081009, end: 20081128
  8. LASIX [Suspect]
     Dosage: 20 MG/DAY
     Route: 048
     Dates: start: 20081218
  9. ALDACTONE [Suspect]
     Indication: CARDIOVASCULAR EVENT PROPHYLAXIS
     Dosage: 25 MG, 1X/DAY
     Route: 048
     Dates: start: 20081009, end: 20081128
  10. HERBESSER ^DELTA^ [Suspect]
     Indication: HYPERTENSION
     Dosage: 100 MG, 1X/DAY
     Route: 048
     Dates: start: 20081009, end: 20081128
  11. ITOROL [Suspect]
     Indication: CORONARY ARTERY DILATATION
     Dosage: 40 MG, 1X/DAY
     Route: 048
     Dates: start: 20081009, end: 20081128
  12. ITOROL [Suspect]
     Dosage: 20 MG/DAY
     Route: 048
     Dates: start: 20081210
  13. WARFARIN [Suspect]
     Indication: ANTICOAGULANT THERAPY
     Dosage: 4 MG, 1X/DAY
     Route: 048
     Dates: start: 20081009
  14. WARFARIN [Suspect]
     Dosage: 1 MG/DAY
     Route: 048
     Dates: start: 20081009, end: 20081128
  15. WARFARIN [Suspect]
     Dosage: 4 MG/DAY
     Route: 048
     Dates: start: 20081202
  16. DEPAS [Suspect]
     Indication: ANXIETY
     Dosage: 1 MG, 1X/DAY
     Route: 048
     Dates: start: 20081009
  17. DEPAS [Suspect]
     Dosage: 2 MG/DAY
     Route: 048
     Dates: start: 20081009, end: 20081128
  18. DEPAS [Suspect]
     Dosage: 2 MG/DAY
     Route: 048
     Dates: start: 20081202
  19. MAGNESIUM OXIDE [Concomitant]
     Indication: CONSTIPATION
     Dosage: 750 MG, 1X/DAY
     Route: 048
     Dates: start: 20081009, end: 20081128

REACTIONS (1)
  - HEPATITIS ACUTE [None]
